FAERS Safety Report 5160087-8 (Version None)
Quarter: 2006Q4

REPORT INFORMATION
  Report Type: 
  Country: None (occurrence: None)
  Receive Date: 20061129
  Receipt Date: 20060920
  Transmission Date: 20070319
  Serious: No
  Sender: FDA-Public Use
  Company Number: US-GLAXOSMITHKLINE-A0620882A

PATIENT
  Age: 42 Year
  Sex: Male

DRUGS (3)
  1. WELLBUTRIN SR [Suspect]
     Indication: DEPRESSION
     Dosage: 300MG PER DAY
     Route: 048
     Dates: start: 20060801
  2. KLONOPIN [Concomitant]
  3. ALBUTEROL [Concomitant]

REACTIONS (3)
  - ANXIETY [None]
  - CRYING [None]
  - EMOTIONAL DISORDER [None]
